FAERS Safety Report 18871864 (Version 1)
Quarter: 2021Q1

REPORT INFORMATION
  Report Type: Spontaneous
  Country: CA (occurrence: CA)
  Receive Date: 20210210
  Receipt Date: 20210210
  Transmission Date: 20210420
  Serious: Yes (Other)
  Sender: FDA-Public Use
  Company Number: CA-BAYER-2021-050467

PATIENT
  Age: 52 Year
  Sex: Male

DRUGS (2)
  1. GADOVIST [Suspect]
     Active Substance: GADOBUTROL
     Indication: MAGNETIC RESONANCE IMAGING
     Dosage: 604.72 MG, ONCE
     Route: 042
  2. BUSCOPAN [Concomitant]
     Active Substance: BUTYLSCOPOLAMINE BROMIDE

REACTIONS (7)
  - Heart rate increased [Unknown]
  - Dizziness [Unknown]
  - Paraesthesia [Unknown]
  - Erythema [Unknown]
  - Pallor [Unknown]
  - Peripheral swelling [Unknown]
  - Pruritus [Unknown]
